FAERS Safety Report 18177123 (Version 1)
Quarter: 2020Q3

REPORT INFORMATION
  Report Type: Spontaneous
  Country: IE (occurrence: IE)
  Receive Date: 20200820
  Receipt Date: 20200820
  Transmission Date: 20201103
  Serious: Yes (Hospitalization)
  Sender: FDA-Public Use
  Company Number: IE-MYLANLABS-2020M1071587

PATIENT
  Age: 29 Year
  Sex: Female

DRUGS (3)
  1. ESOMEPRAZOLE. [Concomitant]
     Active Substance: ESOMEPRAZOLE MAGNESIUM
     Indication: PROPHYLAXIS
     Dosage: ESOMPRAZOLE TAKEN 20 MINS BEFORE CIPROFLOXACIN
     Dates: start: 20200612, end: 20200612
  2. CIFLOXAGER [CIPROFLOXACIN] [Suspect]
     Active Substance: CIPROFLOXACIN
     Indication: EAR INFECTION
     Dosage: ONLY TOOK ONE DOSE
     Route: 048
     Dates: start: 20200612, end: 20200612
  3. LEXAPRO [Concomitant]
     Active Substance: ESCITALOPRAM OXALATE
     Indication: DEPRESSION
     Dosage: LONG TERM USE, ONGOING

REACTIONS (7)
  - Glossodynia [Recovered/Resolved]
  - Feeling hot [Recovered/Resolved]
  - Mouth swelling [Recovered/Resolved]
  - Chills [Recovered/Resolved]
  - Swollen tongue [Recovered/Resolved]
  - Oral pain [Recovered/Resolved]
  - Tremor [Recovered/Resolved]

NARRATIVE: CASE EVENT DATE: 20200612
